FAERS Safety Report 7813300-X (Version None)
Quarter: 2011Q4

REPORT INFORMATION
  Report Type: 
  Country: None (occurrence: None)
  Receive Date: 20111013
  Receipt Date: 20111007
  Transmission Date: 20120403
  Serious: Yes (Life-Threatening, Hospitalization)
  Sender: FDA-Public Use
  Company Number: US-GILEAD-2011-0044664

PATIENT

DRUGS (5)
  1. LETAIRIS [Suspect]
     Indication: PULMONARY HYPERTENSION
     Dosage: 10 MG, UNK
     Route: 048
     Dates: start: 20110923
  2. REVATIO [Concomitant]
  3. LETAIRIS [Suspect]
     Indication: CARDIAC VENTRICULAR DISORDER
  4. LETAIRIS [Suspect]
     Indication: SLEEP APNOEA SYNDROME
  5. TYVASO [Concomitant]

REACTIONS (3)
  - ACUTE PULMONARY OEDEMA [None]
  - PULMONARY HYPERTENSION [None]
  - CARDIAC FAILURE [None]
